FAERS Safety Report 4570427-6 (Version None)
Quarter: 2005Q1

REPORT INFORMATION
  Report Type: 
  Country: None (occurrence: None)
  Receive Date: 20050204
  Receipt Date: 20050114
  Transmission Date: 20050727
  Serious: Yes (Death)
  Sender: FDA-Public Use
  Company Number: US-MERCK-0501USA03197

PATIENT

DRUGS (3)
  1. ELSPAR [Suspect]
     Indication: ACUTE LYMPHOCYTIC LEUKAEMIA
     Route: 042
  2. VINCRISTINE SULFATE [Concomitant]
     Route: 065
  3. PREDNISONE [Concomitant]
     Route: 065

REACTIONS (1)
  - THROMBOSIS [None]
